FAERS Safety Report 14802597 (Version 3)
Quarter: 2018Q3

REPORT INFORMATION
  Report Type: Report from Study
  Country: US (occurrence: US)
  Receive Date: 20180424
  Receipt Date: 20180913
  Transmission Date: 20181010
  Serious: Yes (Hospitalization)
  Sender: FDA-Public Use
  Company Number: US-ACTELION-A-NJ2016-138137

PATIENT
  Age: 3 Year
  Sex: Male
  Weight: 15.42 kg

DRUGS (11)
  1. REVATIO [Suspect]
     Active Substance: SILDENAFIL CITRATE
     Indication: PULMONARY HYPERTENSION
     Dosage: 14 MG, TID
     Route: 048
  2. ESOMEPRAZOLE [Concomitant]
     Active Substance: ESOMEPRAZOLE
  3. TRACLEER [Suspect]
     Active Substance: BOSENTAN
     Indication: PULMONARY ARTERIAL HYPERTENSION
     Dosage: 31.25 MG, Q12HRS
     Route: 048
     Dates: start: 20170323
  4. REMODULIN [Suspect]
     Active Substance: TREPROSTINIL
     Indication: PULMONARY HYPERTENSION
     Dosage: 65 NG/KG, UNK
     Route: 058
     Dates: start: 20150224
  5. REMODULIN [Suspect]
     Active Substance: TREPROSTINIL
     Dosage: 86 NG/KG, PER MIN
     Route: 058
     Dates: start: 20170208
  6. CODEINE [Concomitant]
     Active Substance: CODEINE
  7. TRACLEER [Suspect]
     Active Substance: BOSENTAN
     Dosage: 31.25 MG, BID
     Route: 048
     Dates: start: 20140611
  8. HYDROXYCHLOROQUINE [Concomitant]
     Active Substance: HYDROXYCHLOROQUINE
     Dosage: UNK
  9. SILVADENE [Concomitant]
     Active Substance: SILVER SULFADIAZINE
  10. PREDNISOLONE. [Concomitant]
     Active Substance: PREDNISOLONE
  11. LEVETIRACETAM. [Concomitant]
     Active Substance: LEVETIRACETAM

REACTIONS (15)
  - Injection site reaction [Recovering/Resolving]
  - Heart rate irregular [Not Recovered/Not Resolved]
  - Fatigue [Recovering/Resolving]
  - Infusion site haemorrhage [Unknown]
  - Infusion site swelling [Unknown]
  - Rash [Not Recovered/Not Resolved]
  - Infusion site erythema [Unknown]
  - Drug dose omission [Unknown]
  - Oedema [Recovering/Resolving]
  - Infection [Unknown]
  - Catheter site infection [Not Recovered/Not Resolved]
  - Flushing [Unknown]
  - Coagulopathy [Recovered/Resolved]
  - Pain [Recovered/Resolved]
  - Inappropriate schedule of drug administration [Unknown]

NARRATIVE: CASE EVENT DATE: 201611
